FAERS Safety Report 8893854 (Version 1)
Quarter: 2012Q4

REPORT INFORMATION
  Report Type: 
  Country: US (occurrence: US)
  Receive Date: 20121107
  Receipt Date: 20121107
  Transmission Date: 20130627
  Serious: No
  Sender: FDA-Public Use
  Company Number: US-AMGEN-USASP2012058404

PATIENT
  Age: 65 Year
  Sex: Female

DRUGS (11)
  1. ENBREL [Suspect]
     Indication: RHEUMATOID ARTHRITIS
     Dosage: 50 mg, qwk
     Route: 058
     Dates: start: 20120803
  2. BENZONATATE [Concomitant]
     Dosage: 100 mg, UNK
  3. HYDROCODONE/APAP [Concomitant]
     Dosage: 5-500 mg, UNK
  4. TRAMADOL HCL [Concomitant]
     Dosage: 50 mg, UNK
  5. DIOVAN [Concomitant]
     Dosage: 40 mg, UNK
  6. METHOTREXATE [Concomitant]
     Dosage: 2.5 mg, UNK
  7. VITAMIN D /00107901/ [Concomitant]
     Dosage: 1000 unit, UNK
  8. PRAVASTATIN [Concomitant]
     Dosage: 10 mg, UNK
  9. FOLIC ACID [Concomitant]
     Dosage: 1 mg, UNK
  10. MELOXICAM [Concomitant]
     Dosage: 7.5 mg, UNK
  11. ARICEPT [Concomitant]
     Dosage: 5 mg, UNK

REACTIONS (2)
  - Injection site pain [Recovered/Resolved]
  - Injection site bruising [Not Recovered/Not Resolved]
